FAERS Safety Report 23021854 (Version 1)
Quarter: 2023Q4

REPORT INFORMATION
  Report Type: Spontaneous
  Country: GB (occurrence: GB)
  Receive Date: 20231003
  Receipt Date: 20231003
  Transmission Date: 20240110
  Serious: Yes (Other)
  Sender: FDA-Public Use
  Company Number: None

PATIENT
  Age: 46 Year
  Sex: Female

DRUGS (4)
  1. ESTRADIOL [Suspect]
     Active Substance: ESTRADIOL
     Indication: Menopause
     Dosage: 50 MG
     Route: 062
     Dates: start: 20220225, end: 20220311
  2. LITHIUM [Concomitant]
     Active Substance: LITHIUM
     Indication: Bipolar disorder
     Dosage: UNK
     Route: 065
     Dates: start: 20190610
  3. PROGESTERONE [Concomitant]
     Active Substance: PROGESTERONE
     Indication: Hormone replacement therapy
     Route: 065
     Dates: start: 20210921, end: 20220311
  4. METFORMIN HYDROCHLORIDE [Concomitant]
     Active Substance: METFORMIN HYDROCHLORIDE
     Indication: Diabetes mellitus
     Route: 065
     Dates: start: 20211123

REACTIONS (6)
  - Chorea [Recovering/Resolving]
  - Depression suicidal [Recovered/Resolved]
  - Agitation [Recovered/Resolved with Sequelae]
  - Restless legs syndrome [Not Recovered/Not Resolved]
  - Balance disorder [Recovering/Resolving]
  - Abdominal pain [Recovering/Resolving]

NARRATIVE: CASE EVENT DATE: 20220226
